FAERS Safety Report 4909183-8 (Version None)
Quarter: 2006Q1

REPORT INFORMATION
  Report Type: 
  Country: None (occurrence: None)
  Receive Date: 20060208
  Receipt Date: 20060125
  Transmission Date: 20060701
  Serious: Yes (Life-Threatening, Hospitalization)
  Sender: FDA-Public Use
  Company Number: 221481

PATIENT
  Age: 65 Year
  Sex: Female
  Weight: 51.2 kg

DRUGS (10)
  1. AVASTIN [Suspect]
     Indication: NON-SMALL CELL LUNG CANCER
     Dosage: 784 MG, Q3W, INTRAVENOUS
     Route: 042
     Dates: start: 20051129, end: 20060117
  2. ELOXATIN [Suspect]
     Indication: NON-SMALL CELL LUNG CANCER
     Dosage: 184 MG, Q3W, INTRAVENOUS
     Route: 042
     Dates: start: 20051129, end: 20060117
  3. ALIMTA [Suspect]
     Indication: NON-SMALL CELL LUNG CANCER
     Dosage: 765 MG, Q3W, INTRAVENOUS
     Route: 042
     Dates: start: 20051129, end: 20060117
  4. LORAZEPAM [Concomitant]
  5. ZESTRIL [Concomitant]
  6. SYNTHROID [Concomitant]
  7. OXYCONTIN [Concomitant]
  8. PERCOCET [Concomitant]
  9. ZOFRAN [Concomitant]
  10. AMOXICILLIN [Concomitant]

REACTIONS (1)
  - LOBAR PNEUMONIA [None]
